FAERS Safety Report 6659896-5 (Version None)
Quarter: 2010Q1

REPORT INFORMATION
  Report Type: 
  Country: None (occurrence: None)
  Receive Date: 20100330
  Receipt Date: 20100330
  Transmission Date: 20100710
  Serious: Yes (Other)
  Sender: FDA-Public Use
  Company Number: None

PATIENT
  Age: 48 Year
  Sex: Female
  Weight: 57.6068 kg

DRUGS (2)
  1. BISACODYL [Suspect]
     Indication: BOWEL PREPARATION
     Dosage: (1 DOSAGE)
     Dates: start: 20100325, end: 20100325
  2. BISACODYL [Suspect]
     Indication: COLONOSCOPY
     Dosage: (1 DOSAGE)
     Dates: start: 20100325, end: 20100325

REACTIONS (8)
  - BLOOD PRESSURE INCREASED [None]
  - DISORIENTATION [None]
  - DYSARTHRIA [None]
  - FEELING ABNORMAL [None]
  - HEADACHE [None]
  - HEART RATE INCREASED [None]
  - LOSS OF CONSCIOUSNESS [None]
  - NAUSEA [None]
